FAERS Safety Report 17609626 (Version 1)
Quarter: 2020Q2

REPORT INFORMATION
  Report Type: Spontaneous
  Country: IT (occurrence: IT)
  Receive Date: 20200401
  Receipt Date: 20200401
  Transmission Date: 20200713
  Serious: Yes (Hospitalization)
  Sender: FDA-Public Use
  Company Number: IT-PFIZER INC-2020133431

PATIENT
  Age: 48 Year
  Sex: Female

DRUGS (2)
  1. ROIPNOL [Suspect]
     Active Substance: FLUNITRAZEPAM
     Dosage: 4 DF, TOTAL
     Route: 048
     Dates: start: 20200116, end: 20200116
  2. XANAX [Suspect]
     Active Substance: ALPRAZOLAM
     Dosage: 4 DF, TOTAL
     Route: 048
     Dates: start: 20200116, end: 20200116

REACTIONS (2)
  - Drug abuse [Recovering/Resolving]
  - Sopor [Recovering/Resolving]

NARRATIVE: CASE EVENT DATE: 20200116
